FAERS Safety Report 18319700 (Version 2)
Quarter: 2020Q4

REPORT INFORMATION
  Report Type: Spontaneous
  Country: IT (occurrence: IT)
  Receive Date: 20200928
  Receipt Date: 20201006
  Transmission Date: 20210113
  Serious: Yes (Hospitalization)
  Sender: FDA-Public Use
  Company Number: IT-TEVA-2020-IT-1832858

PATIENT
  Age: 65 Year
  Sex: Male

DRUGS (2)
  1. OXALIPLATIN. [Suspect]
     Active Substance: OXALIPLATIN
     Indication: LUNG CANCER METASTATIC
     Dosage: ON DAY 1; ADMINISTERED EVERY 3 WEEKS
     Route: 065
     Dates: start: 20190926
  2. CAPECITABINE. [Suspect]
     Active Substance: CAPECITABINE
     Indication: LUNG CANCER METASTATIC
     Dosage: 1.6 G/M2/DAY ON DAYS 1 TO 15, ADMINISTERED EVERY 3 WEEKS
     Route: 065
     Dates: start: 20190926

REACTIONS (1)
  - Hyperammonaemic encephalopathy [Recovered/Resolved]

NARRATIVE: CASE EVENT DATE: 201910
